FAERS Safety Report 4448718-9 (Version None)
Quarter: 2004Q3

REPORT INFORMATION
  Report Type: 
  Country: None (occurrence: None)
  Receive Date: 20040909
  Receipt Date: 20040824
  Transmission Date: 20050211
  Serious: Yes (Hospitalization)
  Sender: FDA-Public Use
  Company Number: 2004-BP-07092NB (1)

PATIENT
  Age: 78 Year
  Sex: Male

DRUGS (4)
  1. MICARDIS [Suspect]
     Indication: HYPERTENSION
     Dosage: 40 MG
     Route: 048
     Dates: start: 20040626, end: 20040705
  2. OMEPRAZOLE (OMEPRAZOLE) (TA) [Suspect]
     Indication: GASTROOESOPHAGEAL REFLUX DISEASE
     Dosage: 20 MG
     Route: 048
     Dates: start: 20040628, end: 20040705
  3. RISUMIC (AMEZINIUM METILSULFATE (TA) [Suspect]
     Indication: ORTHOSTATIC HYPOTENSION
     Dosage: 1 MG
     Route: 048
     Dates: start: 20011207, end: 20040801
  4. FUTHAN (NAFAMOSTAT MESILATE (AMV) [Suspect]
     Indication: RENAL FAILURE CHRONIC
     Dosage: 20 MG
     Route: 042
     Dates: start: 20031207, end: 20040725

REACTIONS (2)
  - EOSINOPHILIA [None]
  - THROMBOCYTOPENIA [None]
